FAERS Safety Report 22100542 (Version 1)
Quarter: 2023Q1

REPORT INFORMATION
  Report Type: Report from Study
  Country: US (occurrence: None)
  Receive Date: 20230316
  Receipt Date: 20230316
  Transmission Date: 20230417
  Serious: Yes (Death)
  Sender: FDA-Public Use
  Company Number: 2023A060670

PATIENT
  Age: 21136 Day
  Sex: Female

DRUGS (1)
  1. LYNPARZA [Suspect]
     Active Substance: OLAPARIB
     Route: 048
     Dates: end: 202302

REACTIONS (2)
  - Death [Fatal]
  - Stomatitis [Unknown]

NARRATIVE: CASE EVENT DATE: 20230223
